FAERS Safety Report 5304440-8 (Version None)
Quarter: 2007Q2

REPORT INFORMATION
  Report Type: 
  Country: None (occurrence: None)
  Receive Date: 20070423
  Receipt Date: 20070412
  Transmission Date: 20071010
  Serious: Yes (Other)
  Sender: FDA-Public Use
  Company Number: JP-BRISTOL-MYERS SQUIBB COMPANY-13755186

PATIENT
  Age: 37 Year
  Sex: Male

DRUGS (3)
  1. GATIFLO TABS 100 MG [Suspect]
     Indication: UPPER RESPIRATORY TRACT INFLAMMATION
     Route: 048
     Dates: start: 20060825, end: 20060827
  2. DASEN [Suspect]
     Route: 048
     Dates: start: 20060825, end: 20060827
  3. CALONAL [Suspect]
     Route: 048
     Dates: start: 20060825, end: 20060827

REACTIONS (1)
  - HYPERGLYCAEMIA [None]
